FAERS Safety Report 5680448-8 (Version None)
Quarter: 2008Q1

REPORT INFORMATION
  Report Type: 
  Country: None (occurrence: None)
  Receive Date: 20080326
  Receipt Date: 20080319
  Transmission Date: 20080703
  Serious: Yes (Death)
  Sender: FDA-Public Use
  Company Number: A0717115A

PATIENT
  Sex: Female
  Weight: 60 kg

DRUGS (2)
  1. SERETIDE [Suspect]
     Route: 055
     Dates: start: 20071022, end: 20080301
  2. SPIRIVA [Concomitant]

REACTIONS (2)
  - DEATH [None]
  - DRUG ADMINISTRATION ERROR [None]
